FAERS Safety Report 13447461 (Version 1)
Quarter: 2017Q2

REPORT INFORMATION
  Report Type: Spontaneous
  Country: US (occurrence: US)
  Receive Date: 20170417
  Receipt Date: 20170417
  Transmission Date: 20170830
  Serious: No
  Sender: FDA-Public Use
  Company Number: US-BAYER-2017-072061

PATIENT
  Sex: Male

DRUGS (8)
  1. CLARITIN [Suspect]
     Active Substance: LORATADINE
     Indication: HYPERSENSITIVITY
  2. CLARITIN [Suspect]
     Active Substance: LORATADINE
     Indication: SNEEZING
  3. CLARITIN [Suspect]
     Active Substance: LORATADINE
     Indication: VIRAL UPPER RESPIRATORY TRACT INFECTION
  4. CLARITIN [Suspect]
     Active Substance: LORATADINE
     Indication: RHINORRHOEA
  5. CLARITIN [Suspect]
     Active Substance: LORATADINE
     Indication: VIRAL UPPER RESPIRATORY TRACT INFECTION
  6. CLARITIN [Suspect]
     Active Substance: LORATADINE
     Indication: HYPERSENSITIVITY
  7. CLARITIN [Suspect]
     Active Substance: LORATADINE
     Indication: RHINORRHOEA
  8. CLARITIN [Suspect]
     Active Substance: LORATADINE
     Indication: SNEEZING

REACTIONS (1)
  - Drug ineffective [Unknown]
